FAERS Safety Report 16965021 (Version 1)
Quarter: 2019Q4

REPORT INFORMATION
  Report Type: Spontaneous
  Country: US (occurrence: US)
  Receive Date: 20191028
  Receipt Date: 20191028
  Transmission Date: 20200122
  Serious: Yes (Other)
  Sender: FDA-Public Use
  Company Number: US-SCIEGEN PHARMACEUTICALS INC-2019SCILIT00286

PATIENT

DRUGS (7)
  1. UNSPECIFIED BENZODIAZEPINES [Suspect]
     Active Substance: BENZODIAZEPINE
  2. MARIJUANA [Concomitant]
     Active Substance: CANNABIS SATIVA SUBSP. INDICA TOP
  3. ILLICIT OXYCODONE [Concomitant]
  4. GABAPENTIN TABLETS [Suspect]
     Active Substance: GABAPENTIN
  5. METHADONE [Suspect]
     Active Substance: METHADONE HYDROCHLORIDE
  6. DIAMORPHINE [HEROIN] [Concomitant]
  7. CLONIDINE. [Suspect]
     Active Substance: CLONIDINE

REACTIONS (3)
  - Sedation [Recovered/Resolved]
  - Maternal use of illicit drugs [Unknown]
  - Exposure during pregnancy [Unknown]
